FAERS Safety Report 24575465 (Version 4)
Quarter: 2025Q4

REPORT INFORMATION
  Report Type: Other
  Country: US (occurrence: US)
  Receive Date: 20241104
  Receipt Date: 20251002
  Transmission Date: 20260118
  Serious: No
  Sender: TRAVERE THERAPEUTICS
  Company Number: US-TRAVERE-2024TVT01047

PATIENT
  Age: 56 Year
  Sex: Male

DRUGS (10)
  1. FILSPARI [Suspect]
     Active Substance: SPARSENTAN
     Indication: IgA nephropathy
     Route: 048
     Dates: start: 20240919
  2. FILSPARI [Suspect]
     Active Substance: SPARSENTAN
     Route: 048
     Dates: start: 20241011
  3. FUROSEMIDE [Concomitant]
     Active Substance: FUROSEMIDE
  4. CHLORTHALIDONE [Concomitant]
     Active Substance: CHLORTHALIDONE
  5. ADDERALL [Concomitant]
     Active Substance: AMPHETAMINE ASPARTATE\AMPHETAMINE SULFATE\DEXTROAMPHETAMINE SACCHARATE\DEXTROAMPHETAMINE SULFATE
  6. ASPIRIN [Concomitant]
     Active Substance: ASPIRIN
  7. IRBESARTAN [Concomitant]
     Active Substance: IRBESARTAN
  8. HYDRALAZINE [Concomitant]
     Active Substance: HYDRALAZINE HYDROCHLORIDE
  9. LASIX [Concomitant]
     Active Substance: FUROSEMIDE
  10. PREDNISONE [Concomitant]
     Active Substance: PREDNISONE

REACTIONS (13)
  - Pollakiuria [Recovering/Resolving]
  - Malaise [Unknown]
  - Nausea [None]
  - Blood pressure abnormal [None]
  - Dizziness [Unknown]
  - Back pain [None]
  - Arthralgia [Unknown]
  - Joint swelling [Unknown]
  - Nasal congestion [None]
  - Insomnia [Recovering/Resolving]
  - Erectile dysfunction [Recovering/Resolving]
  - Restless legs syndrome [Unknown]
  - Contraindicated product administered [Unknown]
